FAERS Safety Report 5024032-8 (Version None)
Quarter: 2006Q2

REPORT INFORMATION
  Report Type: 
  Country: None (occurrence: None)
  Receive Date: 20060607
  Receipt Date: 20060530
  Transmission Date: 20061013
  Serious: Yes (Death)
  Sender: FDA-Public Use
  Company Number: HQWYE576531MAY06

PATIENT
  Sex: 0

DRUGS (1)
  1. ZOSYN [Suspect]
     Indication: ABDOMINAL INFECTION
     Dosage: 3.375G EVERY 6HRS OR 4.5G EVERY 8H, INTRAVENOUS
     Route: 042

REACTIONS (1)
  - SEPSIS [None]
